FAERS Safety Report 7351883-7 (Version None)
Quarter: 2011Q1

REPORT INFORMATION
  Report Type: 
  Country: None (occurrence: None)
  Receive Date: 20110315
  Receipt Date: 20110307
  Transmission Date: 20110831
  Serious: Yes (Death, Hospitalization, Other)
  Sender: FDA-Public Use
  Company Number: JP-JNJFOC-20110304586

PATIENT
  Age: 49 Year
  Sex: Male

DRUGS (36)
  1. INVEGA [Suspect]
     Route: 048
  2. SOFMIN AMEL [Concomitant]
     Route: 048
  3. CARBAMAZEPINE [Concomitant]
     Route: 048
  4. AKINETON [Concomitant]
     Route: 048
  5. DAI-KENCHU-TO [Concomitant]
     Route: 048
  6. SENNOSIDE [Concomitant]
     Route: 048
  7. INVEGA [Suspect]
     Indication: AGITATION
     Route: 048
  8. RISPERIDONE [Suspect]
     Indication: PRODUCT USED FOR UNKNOWN INDICATION
     Route: 048
  9. SORENTMIN [Concomitant]
     Route: 048
  10. SOFMIN AMEL [Concomitant]
     Route: 048
  11. SOFMIN AMEL [Concomitant]
     Route: 048
  12. INVEGA [Suspect]
     Route: 048
  13. MAGLAX [Concomitant]
     Route: 048
  14. INVEGA [Suspect]
     Route: 048
  15. CONTOMIN [Concomitant]
     Route: 048
  16. SOFMIN AMEL [Concomitant]
     Route: 048
  17. CARBAMAZEPINE [Concomitant]
     Route: 048
  18. SENNOSIDE [Concomitant]
     Route: 048
  19. SENNOSIDE [Concomitant]
     Route: 048
  20. INVEGA [Suspect]
     Indication: HALLUCINATION
     Route: 048
  21. FLUNITRAZEPAM [Concomitant]
     Route: 048
  22. GASMET [Concomitant]
     Route: 048
  23. GASMET [Concomitant]
     Route: 048
  24. DAI-KENCHU-TO [Concomitant]
     Route: 048
  25. DIAZEPAM [Concomitant]
     Route: 048
  26. DAI-KENCHU-TO [Concomitant]
     Route: 048
  27. SENNOSIDE [Concomitant]
     Route: 048
  28. LAXATIVE [Concomitant]
     Route: 065
  29. INVEGA [Suspect]
     Route: 048
  30. MAGLAX [Concomitant]
     Route: 048
  31. FLUNITRAZEPAM [Concomitant]
     Route: 048
  32. SORENTMIN [Concomitant]
     Route: 048
  33. DIAZEPAM [Concomitant]
     Route: 048
  34. AKINETON [Concomitant]
     Route: 048
  35. MAGLAX [Concomitant]
     Route: 048
  36. MAGLAX [Concomitant]
     Route: 048

REACTIONS (4)
  - CARDIAC ARREST [None]
  - CONSTIPATION [None]
  - PNEUMONIA [None]
  - FALL [None]
